FAERS Safety Report 7833302-7 (Version None)
Quarter: 2011Q4

REPORT INFORMATION
  Report Type: 
  Country: None (occurrence: None)
  Receive Date: 20111024
  Receipt Date: 20111013
  Transmission Date: 20120403
  Serious: Yes (Hospitalization)
  Sender: FDA-Public Use
  Company Number: US-ELI_LILLY_AND_COMPANY-US201106001800

PATIENT
  Sex: Female

DRUGS (21)
  1. FORTEO [Suspect]
     Dosage: 20 UG, QD
  2. EVISTA [Suspect]
     Dosage: 60 MG, UNK
  3. VITAMIN B-12 [Concomitant]
  4. OXYCONTIN [Concomitant]
     Dosage: 40 MG, TID
  5. FUROSEMIDE [Concomitant]
  6. FORTEO [Suspect]
     Indication: OSTEOPOROSIS
     Dosage: 20 UG, QD
  7. XOPENEX [Concomitant]
     Route: 055
  8. PREDNISONE [Concomitant]
     Dosage: 7.5 MG, QD
  9. CRESTOR [Concomitant]
     Dosage: 5 MG, QD
  10. FORTEO [Suspect]
     Dosage: 20 UG, QD
  11. ROXICODONE [Concomitant]
     Dosage: 30 MG, PRN
  12. PROTONIX [Concomitant]
     Dosage: 40 MG, QD
  13. CALCIUM CARBONATE [Concomitant]
     Dosage: 600 MG, UNK
  14. ESTRACE [Concomitant]
     Dosage: 2 MG, QD
  15. VALIUM [Concomitant]
     Indication: DEPRESSION
     Dosage: 5 MG, TID
  16. SPIRIVA [Concomitant]
     Dosage: UNK UNK, QD
     Route: 055
  17. VITAMIN D [Concomitant]
     Dosage: 5000 IU, BID
     Route: 048
  18. DECADRON [Concomitant]
  19. FORTEO [Suspect]
     Dosage: 20 UG, QD
  20. POTASSIUM CHLORIDE [Concomitant]
     Dosage: UNK UNK, QD
  21. AMBIEN [Concomitant]
     Indication: SLEEP DISORDER
     Dosage: 10 MG, QD

REACTIONS (16)
  - FLUID RETENTION [None]
  - CHRONIC OBSTRUCTIVE PULMONARY DISEASE [None]
  - SINUSITIS [None]
  - HERNIA [None]
  - ABDOMINAL PAIN [None]
  - INJECTION SITE HAEMATOMA [None]
  - HEART RATE INCREASED [None]
  - VEIN DISORDER [None]
  - FATIGUE [None]
  - ABDOMINAL PAIN UPPER [None]
  - ABDOMINAL DISCOMFORT [None]
  - CONTUSION [None]
  - INFLUENZA LIKE ILLNESS [None]
  - OSTEOARTHRITIS [None]
  - WOUND SECRETION [None]
  - ABDOMINAL DISTENSION [None]
